FAERS Safety Report 5357150-5 (Version None)
Quarter: 2007Q2

REPORT INFORMATION
  Report Type: 
  Country: None (occurrence: None)
  Receive Date: 20070613
  Receipt Date: 20070613
  Transmission Date: 20071010
  Serious: Yes (Hospitalization)
  Sender: FDA-Public Use
  Company Number: None

PATIENT
  Age: 59 Year
  Sex: Female
  Weight: 64.4108 kg

DRUGS (1)
  1. LIALDA [Suspect]
     Indication: COLITIS ULCERATIVE
     Dosage: DAILY PO
     Route: 048
     Dates: start: 20070606

REACTIONS (5)
  - ABDOMINAL PAIN [None]
  - CONVULSION [None]
  - DIARRHOEA [None]
  - TREMOR [None]
  - VOMITING [None]
